FAERS Safety Report 11062520 (Version 1)
Quarter: 2015Q2

REPORT INFORMATION
  Report Type: Spontaneous
  Country: DE (occurrence: DE)
  Receive Date: 20150424
  Receipt Date: 20150424
  Transmission Date: 20150821
  Serious: Yes (Life-Threatening)
  Sender: FDA-Public Use
  Company Number: DE-PFIZER INC-2015136318

PATIENT
  Age: 33 Year
  Sex: Male

DRUGS (7)
  1. LYRICA [Suspect]
     Active Substance: PREGABALIN
     Dosage: 75 MG, UNK
     Dates: start: 20120925
  2. CIPRALEX [Concomitant]
     Active Substance: ESCITALOPRAM OXALATE
  3. TRIMIPRAMINE [Interacting]
     Active Substance: TRIMIPRAMINE
  4. HALDOL [Concomitant]
     Active Substance: HALOPERIDOL
  5. TRIMINEURIN [Concomitant]
  6. CHLORPROTHIXENE [Interacting]
     Active Substance: CHLORPROTHIXENE
  7. ABILIFY [Concomitant]
     Active Substance: ARIPIPRAZOLE

REACTIONS (9)
  - Hyperhidrosis [Unknown]
  - Swelling face [Unknown]
  - Disorientation [Unknown]
  - Drug interaction [Recovering/Resolving]
  - Anxiety [Unknown]
  - Nasal congestion [Unknown]
  - Confusional state [Recovering/Resolving]
  - Enlarged uvula [Unknown]
  - Palpitations [Unknown]

NARRATIVE: CASE EVENT DATE: 20120925
